FAERS Safety Report 24731939 (Version 1)
Quarter: 2024Q4

REPORT INFORMATION
  Report Type: Spontaneous
  Country: FR (occurrence: FR)
  Receive Date: 20241213
  Receipt Date: 20241213
  Transmission Date: 20250115
  Serious: No
  Sender: PFIZER
  Company Number: FR-SANDOZ-SDZ2024FR098746

PATIENT
  Age: 15 Year
  Sex: Male

DRUGS (1)
  1. SOMATROPIN [Suspect]
     Active Substance: SOMATROPIN
     Indication: Growth retardation
     Dosage: 1 MG, QD, 1MG/D 7D/7
     Route: 065
     Dates: start: 20230327

REACTIONS (5)
  - Drug ineffective [Unknown]
  - Muscle spasms [Unknown]
  - Injection site pain [Unknown]
  - Burning sensation [Unknown]
  - Intentional product misuse [Unknown]
